FAERS Safety Report 14910551 (Version 2)
Quarter: 2018Q2

REPORT INFORMATION
  Report Type: Report from Study
  Country: CR (occurrence: CR)
  Receive Date: 20180517
  Receipt Date: 20180601
  Transmission Date: 20180711
  Serious: Yes (Hospitalization)
  Sender: FDA-Public Use
  Company Number: PHHY2018CR065052

PATIENT
  Sex: Female
  Weight: 65 kg

DRUGS (4)
  1. DIANE (CYPROTERONE ACETATE\ETHINYL ESTRADIOL) [Concomitant]
     Active Substance: CYPROTERONE ACETATE\ETHINYL ESTRADIOL
     Indication: PRODUCT USED FOR UNKNOWN INDICATION
     Route: 065
  2. VITAMIN E [Concomitant]
     Active Substance: .ALPHA.-TOCOPHEROL
     Indication: PRODUCT USED FOR UNKNOWN INDICATION
     Route: 065
  3. PROMEMORE [Concomitant]
     Active Substance: DONEPEZIL HYDROCHLORIDE
     Indication: MEMORY IMPAIRMENT
     Route: 065
  4. GILENYA [Suspect]
     Active Substance: FINGOLIMOD HYDROCHLORIDE
     Indication: MULTIPLE SCLEROSIS
     Dosage: 0.5 MG, QD (AT 3:15 PM)
     Route: 065
     Dates: start: 20170606

REACTIONS (13)
  - Appendicitis perforated [Unknown]
  - Emotional distress [Unknown]
  - Vertigo [Unknown]
  - Diplopia [Unknown]
  - Muscular weakness [Unknown]
  - Peritonitis [Unknown]
  - Vision blurred [Unknown]
  - Wound infection [Unknown]
  - Malaise [Unknown]
  - Anxiety [Unknown]
  - Hypoaesthesia [Unknown]
  - Abdominal pain [Unknown]
  - Balance disorder [Unknown]
